FAERS Safety Report 26152398 (Version 1)
Quarter: 2025Q4

REPORT INFORMATION
  Report Type: Spontaneous
  Country: US (occurrence: US)
  Receive Date: 20251214
  Receipt Date: 20251214
  Transmission Date: 20260117
  Serious: No
  Sender: Atnahs Healthcare
  Company Number: US-ATNAHS-ATNAHS20250704958

PATIENT
  Age: 63 Year
  Sex: Female
  Weight: 108.39 kg

DRUGS (23)
  1. DIAZEPAM [Suspect]
     Active Substance: DIAZEPAM
     Indication: Product used for unknown indication
     Dosage: UNK
     Route: 065
  2. ACTEMRA ACTPEN [Suspect]
     Active Substance: TOCILIZUMAB
     Indication: Rheumatoid arthritis
     Dosage: 162 MG, 1X/WEEK
     Route: 058
     Dates: start: 2021
  3. ACTEMRA ACTPEN [Suspect]
     Active Substance: TOCILIZUMAB
     Dosage: UNK
     Route: 058
     Dates: start: 20240409, end: 20241006
  4. FLUTICASONE PROPIONATE [Concomitant]
     Active Substance: FLUTICASONE PROPIONATE
     Indication: Product used for unknown indication
     Dosage: UNK
     Route: 065
  5. SYNTHROID [Concomitant]
     Active Substance: LEVOTHYROXINE SODIUM
     Indication: Thyroidectomy
     Dosage: 112 UG,  1 IN 1 DAY
     Dates: start: 1982
  6. SYNTHROID [Concomitant]
     Active Substance: LEVOTHYROXINE SODIUM
     Indication: Product used for unknown indication
     Dosage: TAKE 1 TABLET (112 MCG TOTAL) BY MOUTH
     Dates: start: 20240227, end: 20240825
  7. FOLVITE [Concomitant]
     Active Substance: FOLIC ACID
     Indication: Product used for unknown indication
     Dosage: TAKE 1 TABLET (1 MG TOTAL) BY MOUTH ONCE DAIL
     Dates: start: 20240226, end: 20240824
  8. METHOTREXATE [Concomitant]
     Active Substance: METHOTREXATE
     Indication: Rheumatoid arthritis
     Dosage: 2.5 MG  TABLETS EVERY SATURDAY
  9. METHOTREXATE [Concomitant]
     Active Substance: METHOTREXATE
     Indication: Product used for unknown indication
     Dosage: TAKE 6 TABLETS (15 MG TOTAL) BY MOUTH EVERY 7 DAYS.
  10. MAGNESIUM [Concomitant]
     Active Substance: MAGNESIUM
     Indication: Product used for unknown indication
     Dosage: 400 MG, 1X/DAY AT NIGHT
  11. MAGNESIUM [Concomitant]
     Active Substance: MAGNESIUM
     Dosage: TAKE 250 MG BY MOUTH ONCE TAKE 2 TABLET
  12. INFLUENZA VIRUS VACCINE QUADRIVALENT TYPE A+B [Concomitant]
     Active Substance: INFLUENZA VIRUS VACCINE QUADRIVALENT TYPE A+B
     Indication: Product used for unknown indication
     Dosage: UNK
     Route: 065
  13. ACCUNEB [Concomitant]
     Active Substance: ALBUTEROL SULFATE
     Indication: Product used for unknown indication
     Dosage: 0.63 ML, 3 IN 1 DAY, NEBULIZATION
     Route: 065
     Dates: start: 20230908
  14. TENORMIN [Concomitant]
     Active Substance: ATENOLOL
     Indication: Product used for unknown indication
     Dosage: 125 MG,  1 IN 1 DAY
     Dates: start: 20230908
  15. CELEBREX [Concomitant]
     Active Substance: CELECOXIB
     Indication: Product used for unknown indication
     Dosage: TAKE 1 CAPSULE (200 MG TOTAL) BY MOUTH ONCE DAILY
  16. SOLARAZE [Concomitant]
     Active Substance: DICLOFENAC SODIUM
     Indication: Product used for unknown indication
     Dosage: 100 G APPLY TOPICALLY AS NEEDED
     Route: 061
     Dates: start: 20230908
  17. COLACE [Concomitant]
     Active Substance: DOCUSATE SODIUM
     Indication: Product used for unknown indication
     Dosage: UNK
     Dates: start: 20230908, end: 20240907
  18. ERGOCALCIFEROL [Concomitant]
     Active Substance: ERGOCALCIFEROL
     Indication: Product used for unknown indication
     Dosage: UNK
     Route: 065
     Dates: start: 20240221, end: 20250220
  19. GABAPENTIN [Concomitant]
     Active Substance: GABAPENTIN
     Indication: Product used for unknown indication
     Dosage: 1 CAPSULE (300 MG TOTAL) BY MOUTH 3 (THREE) TIMES DAILY
     Dates: start: 20230908, end: 20240907
  20. NYSTATIN [Concomitant]
     Active Substance: NYSTATIN
     Indication: Product used for unknown indication
     Dosage: APPLY TOPICALLY 2 (TWO) TIMES DAILY FOR 14 DAYS
     Route: 061
  21. PREDNISONE [Concomitant]
     Active Substance: PREDNISONE
     Indication: Product used for unknown indication
     Dosage: TAKE 4 TABLETS BY MOUTH DAYS
     Route: 065
     Dates: start: 20240125
  22. SUMATRIPTAN [Concomitant]
     Active Substance: SUMATRIPTAN
     Indication: Product used for unknown indication
     Dosage: 1 TABLET(S) BY MOUTH EVERY 2 HOURS PRN
  23. TYLENOL [Concomitant]
     Active Substance: ACETAMINOPHEN
     Indication: Product used for unknown indication
     Dosage: UNK
     Route: 065

REACTIONS (9)
  - Osteoporosis [Not Recovered/Not Resolved]
  - Left ventricular hypertrophy [Not Recovered/Not Resolved]
  - Post procedural hypothyroidism [Not Recovered/Not Resolved]
  - Osteoarthritis [Not Recovered/Not Resolved]
  - Immunodeficiency [Not Recovered/Not Resolved]
  - Obesity [Not Recovered/Not Resolved]
  - Essential hypertension [Unknown]
  - Drug hypersensitivity [Unknown]
  - Rheumatoid arthritis [Unknown]

NARRATIVE: CASE EVENT DATE: 20220101
